FAERS Safety Report 17972076 (Version 5)
Quarter: 2021Q2

REPORT INFORMATION
  Report Type: Report from Study
  Country: None (occurrence: DE)
  Receive Date: 20200701
  Receipt Date: 20210423
  Transmission Date: 20210717
  Serious: Yes (Hospitalization)
  Sender: FDA-Public Use
  Company Number: DE-ABBVIE-20K-062-3464965-00

PATIENT
  Age: 32 Year
  Sex: Female
  Weight: 114 kg

DRUGS (10)
  1. SKYRIZI [Suspect]
     Active Substance: RISANKIZUMAB-RZAA
     Indication: PSORIASIS
     Dosage: EVERY 3 MONTHS 2 X 75MG
     Route: 058
     Dates: start: 20190919
  2. SKYRIZI [Suspect]
     Active Substance: RISANKIZUMAB-RZAA
     Route: 058
  3. NEUTROGENA [Concomitant]
     Active Substance: COSMETICS
     Indication: PSORIASIS
     Dosage: SKIN / DERMAL SPRAY EVERY ONE TO TWO DAYS 1 APPLICATION
     Route: 061
     Dates: start: 2015
  4. LEVOCETIRIZIN [Concomitant]
     Active Substance: LEVOCETIRIZINE DIHYDROCHLORIDE
     Indication: PRURITUS
  5. L?THYROXIN [Concomitant]
     Active Substance: LEVOTHYROXINE SODIUM
     Indication: HYPOTHYROIDISM
     Route: 048
     Dates: start: 2003
  6. DESOGESTREL [Concomitant]
     Active Substance: DESOGESTREL
     Indication: CONTRACEPTION
     Route: 048
     Dates: end: 20200525
  7. DAIVOBET [Concomitant]
     Active Substance: BETAMETHASONE DIPROPIONATE\CALCIPOTRIENE
     Indication: PSORIASIS
     Dosage: SKIN / DERMAL SPRAY, EVERY ONE OR TWO DAYS ONCE
     Route: 061
     Dates: start: 2015
  8. SAYANA [Concomitant]
     Active Substance: MEDROXYPROGESTERONE
     Indication: CONTRACEPTION
     Route: 058
     Dates: start: 20200710
  9. LEVOCETIRIZIN [Concomitant]
     Active Substance: LEVOCETIRIZINE DIHYDROCHLORIDE
     Indication: PSORIASIS
     Route: 048
  10. ENSTILAR [Concomitant]
     Active Substance: BETAMETHASONE DIPROPIONATE\CALCIPOTRIENE HYDRATE
     Indication: PSORIASIS
     Dosage: FOAM, SKIN / DERMAL SPRAY, EVERY ONE TO TWO DAYS 1 APPLICATION
     Route: 061
     Dates: start: 2015

REACTIONS (3)
  - Gastroenterostomy [Recovered/Resolved]
  - Gastric bypass [Recovered/Resolved]
  - Endoscopy upper gastrointestinal tract [Recovered/Resolved]

NARRATIVE: CASE EVENT DATE: 20200608
